FAERS Safety Report 18036123 (Version 1)
Quarter: 2020Q3

REPORT INFORMATION
  Report Type: Spontaneous
  Country: US (occurrence: US)
  Receive Date: 20200716
  Receipt Date: 20200716
  Transmission Date: 20201103
  Serious: Yes (Other)
  Sender: FDA-Public Use
  Company Number: None

PATIENT
  Age: 61 Year
  Sex: Male
  Weight: 98 kg

DRUGS (1)
  1. DIAZEPAM (DIAZEPAM 5MG TAB) [Suspect]
     Active Substance: DIAZEPAM
     Indication: SEIZURE
     Route: 048
     Dates: start: 20190914, end: 20190915

REACTIONS (5)
  - Blood pH increased [None]
  - Respiratory failure [None]
  - Sedation [None]
  - Unresponsive to stimuli [None]
  - Respiratory depression [None]

NARRATIVE: CASE EVENT DATE: 20190916
